FAERS Safety Report 13031232 (Version 1)
Quarter: 2016Q4

REPORT INFORMATION
  Report Type: Spontaneous
  Country: FR (occurrence: FR)
  Receive Date: 20161215
  Receipt Date: 20161215
  Transmission Date: 20170207
  Serious: Yes (Death, Hospitalization, Other)
  Sender: FDA-Public Use
  Company Number: FR-BAXTER-2016BAX061238

PATIENT
  Age: 65 Year
  Sex: Male
  Weight: 92 kg

DRUGS (27)
  1. PREDNISONE. [Suspect]
     Active Substance: PREDNISONE
     Indication: BONE CANCER
     Dosage: R-CHOP THERAPY, TOTAL 8 COURSES, 1ST COURSE ON 11DEC2014
     Route: 065
     Dates: start: 20141211
  2. ENDOXAN 500 MG, POUDRE POUR SOLUTION INJECTABLE [Suspect]
     Active Substance: CYCLOPHOSPHAMIDE
     Indication: B-CELL LYMPHOMA
     Dosage: SINGLE INTAKE
     Route: 042
     Dates: start: 20161014, end: 20161014
  3. PREDNISONE. [Suspect]
     Active Substance: PREDNISONE
     Indication: B-CELL LYMPHOMA
     Dosage: CEP COURSE
     Route: 065
     Dates: start: 20161015
  4. RITUXIMAB [Suspect]
     Active Substance: RITUXIMAB
     Indication: NON-HODGKIN^S LYMPHOMA
  5. NEBIVOLOL. [Concomitant]
     Active Substance: NEBIVOLOL
     Indication: PRODUCT USED FOR UNKNOWN INDICATION
     Route: 065
  6. FENOFIBRATE. [Concomitant]
     Active Substance: FENOFIBRATE
     Indication: PRODUCT USED FOR UNKNOWN INDICATION
     Dosage: IN THE EVENING
     Route: 065
  7. ENDOXAN 1000 MG, POUDRE POUR SOLUTION INJECTABLE [Suspect]
     Active Substance: CYCLOPHOSPHAMIDE
     Indication: BONE CANCER
     Dosage: CEP COURSE
     Route: 065
     Dates: start: 20161015
  8. UROMITEXAN 5 G/50 ML, SOLUTION INJECTABLE POUR PERFUSION EN FLACON [Suspect]
     Active Substance: MESNA
     Indication: PRODUCT USED FOR UNKNOWN INDICATION
     Dosage: AFTER 0 HOURS, 2 HOURS AND 4 HOURS
     Route: 042
     Dates: start: 20161014
  9. HYDROXYL-DOXORUBICINE [Suspect]
     Active Substance: DOXORUBICIN
     Indication: BONE CANCER
     Dosage: R-CHOP THERAPY, TOTAL 8 COURSE, 1ST COURSE ON 11DEC2014
     Route: 065
     Dates: start: 20141211
  10. HYDROXYL-DOXORUBICINE [Suspect]
     Active Substance: DOXORUBICIN
     Indication: NON-HODGKIN^S LYMPHOMA
  11. VINCRISTINE [Suspect]
     Active Substance: VINCRISTINE
     Indication: NON-HODGKIN^S LYMPHOMA
  12. HUMALOG [Concomitant]
     Active Substance: INSULIN LISPRO
     Indication: PRODUCT USED FOR UNKNOWN INDICATION
     Dosage: DEPENDING ON THE THERAPY
     Route: 065
  13. METHYLPREDNISOLONE. [Suspect]
     Active Substance: METHYLPREDNISOLONE
     Indication: PRODUCT USED FOR UNKNOWN INDICATION
     Route: 042
     Dates: start: 20161014
  14. FUROSEMIDE. [Concomitant]
     Active Substance: FUROSEMIDE
     Indication: PRODUCT USED FOR UNKNOWN INDICATION
     Dosage: MORNING AND MID DAY
     Route: 065
  15. ENDOXAN 1000 MG, POUDRE POUR SOLUTION INJECTABLE [Suspect]
     Active Substance: CYCLOPHOSPHAMIDE
     Indication: B-CELL LYMPHOMA
     Dosage: SINGLE INTAKE
     Route: 042
     Dates: start: 20161014, end: 20161014
  16. RITUXIMAB [Suspect]
     Active Substance: RITUXIMAB
     Indication: BONE CANCER
     Dosage: R-CHOP, TOTAL 8 COURSES, 1ST COURSE ON 11DEC2014
     Route: 065
     Dates: start: 20141211
  17. RAMIPRIL. [Concomitant]
     Active Substance: RAMIPRIL
     Indication: PRODUCT USED FOR UNKNOWN INDICATION
     Dosage: IN THE MORNING
     Route: 065
  18. CELLTOP 50 MG, CAPSULE [Suspect]
     Active Substance: ETOPOSIDE
     Indication: B-CELL LYMPHOMA
     Dosage: CEP COURSE
     Route: 065
     Dates: start: 20161015
  19. ALPRAZOLAM. [Concomitant]
     Active Substance: ALPRAZOLAM
     Indication: PRODUCT USED FOR UNKNOWN INDICATION
     Route: 065
  20. VINDESINE SULPHATE [Suspect]
     Active Substance: VINDESINE SULFATE
     Indication: PRODUCT USED FOR UNKNOWN INDICATION
     Dosage: SINGLE INTAKE
     Route: 042
  21. VINCRISTINE [Suspect]
     Active Substance: VINCRISTINE
     Indication: BONE CANCER
     Dosage: R-CHOP THERAPY, TOTAL 8 COURSES, 1ST COURSE ON 11DEC2014
     Route: 065
     Dates: start: 20141211
  22. SOLU-MEDROL [Concomitant]
     Active Substance: METHYLPREDNISOLONE SODIUM SUCCINATE
     Indication: PRODUCT USED FOR UNKNOWN INDICATION
     Route: 065
  23. ENDOXAN 1000 MG, POUDRE POUR SOLUTION INJECTABLE [Suspect]
     Active Substance: CYCLOPHOSPHAMIDE
     Indication: NON-HODGKIN^S LYMPHOMA
     Dosage: R-CHOP THERAPY, TOTAL 8 COURSES, 1ST COURSE ON 11DEC2014
     Route: 065
     Dates: start: 20141211
  24. PREDNISONE. [Suspect]
     Active Substance: PREDNISONE
     Indication: NON-HODGKIN^S LYMPHOMA
  25. PREVISCAN [Concomitant]
     Active Substance: FLUINDIONE
     Indication: PRODUCT USED FOR UNKNOWN INDICATION
     Dosage: 1 DF, 0.75 DF
     Route: 065
  26. LANTUS [Concomitant]
     Active Substance: INSULIN GLARGINE
     Indication: PRODUCT USED FOR UNKNOWN INDICATION
     Route: 065
  27. PANTOPRAZOLE [Concomitant]
     Active Substance: PANTOPRAZOLE SODIUM
     Indication: PRODUCT USED FOR UNKNOWN INDICATION
     Dosage: IN THE MORNING
     Route: 065

REACTIONS (12)
  - Respiratory distress [Fatal]
  - Non-Hodgkin^s lymphoma stage IV [Unknown]
  - Lymphadenopathy [Unknown]
  - Pulmonary oedema [Unknown]
  - Confusional state [Unknown]
  - Non-Hodgkin^s lymphoma recurrent [Unknown]
  - Nervous system neoplasm [Unknown]
  - Condition aggravated [Unknown]
  - Tumour lysis syndrome [Fatal]
  - Somnolence [Unknown]
  - Cardio-respiratory arrest [Fatal]
  - Renal failure [Unknown]

NARRATIVE: CASE EVENT DATE: 20161007
